FAERS Safety Report 13258466 (Version 2)
Quarter: 2017Q2

REPORT INFORMATION
  Report Type: Report from Study
  Country: US (occurrence: US)
  Receive Date: 20170222
  Receipt Date: 20170501
  Transmission Date: 20170830
  Serious: Yes (Death, Other)
  Sender: FDA-Public Use
  Company Number: US-ROCHE-1893645

PATIENT

DRUGS (6)
  1. METHYLPREDNISOLONE. [Suspect]
     Active Substance: METHYLPREDNISOLONE
     Indication: NON-HODGKIN^S LYMPHOMA
     Route: 065
  2. CYCLOPHOSPHAMIDE. [Suspect]
     Active Substance: CYCLOPHOSPHAMIDE
     Indication: NON-HODGKIN^S LYMPHOMA
     Route: 042
  3. RITUXIMAB [Suspect]
     Active Substance: RITUXIMAB
     Indication: NON-HODGKIN^S LYMPHOMA
     Route: 065
  4. FLUDARABINE [Suspect]
     Active Substance: FLUDARABINE PHOSPHATE
     Indication: NON-HODGKIN^S LYMPHOMA
     Route: 042
  5. DENILEUKIN DIFTITOX [Suspect]
     Active Substance: DENILEUKIN DIFTITOX
     Indication: NON-HODGKIN^S LYMPHOMA
     Route: 042
  6. PENTOSTATIN. [Suspect]
     Active Substance: PENTOSTATIN
     Indication: NON-HODGKIN^S LYMPHOMA
     Route: 042

REACTIONS (6)
  - Sepsis [Fatal]
  - Febrile neutropenia [Unknown]
  - Tumour lysis syndrome [Unknown]
  - Pneumocystis jirovecii pneumonia [Unknown]
  - Thrombotic microangiopathy [Unknown]
  - Clostridium difficile colitis [Unknown]
